FAERS Safety Report 5110028-4 (Version None)
Quarter: 2006Q3

REPORT INFORMATION
  Report Type: 
  Country: None (occurrence: None)
  Receive Date: 20060921
  Receipt Date: 20051202
  Transmission Date: 20061208
  Serious: Yes (Hospitalization, Other)
  Sender: FDA-Public Use
  Company Number: FRWYE200702DEC05

PATIENT
  Sex: Female

DRUGS (9)
  1. ENBREL [Suspect]
     Indication: ANKYLOSING SPONDYLITIS
     Route: 058
     Dates: start: 20050215, end: 20050901
  2. NOVATREX [Suspect]
     Indication: ANKYLOSING SPONDYLITIS
     Dosage: 10 MG TOTAL WEEKLY
     Route: 048
     Dates: start: 20040115
  3. DI-ANTALVIC [Suspect]
     Indication: ANALGESIC THERAPY
     Dosage: 2 TO 6 CAPSULES DAILY
     Route: 048
     Dates: start: 20040115, end: 20051201
  4. APRANAX [Concomitant]
     Dosage: 1100 MG TOTAL DAILY
     Route: 048
     Dates: start: 20041201, end: 20051201
  5. APRANAX [Concomitant]
     Route: 048
     Dates: start: 20051201
  6. SPECIAFOLDINE [Concomitant]
     Indication: HYPERHOMOCYSTEINAEMIA
     Dosage: REPORTEDLY 10 MG TOTAL WEEKLY
     Route: 048
     Dates: start: 20050801
  7. SULFASALAZINE [Concomitant]
     Indication: ANKYLOSING SPONDYLITIS
     Dosage: 200 MG TOTAL DAILY
     Route: 048
     Dates: end: 20050101
  8. CORTICOSTEROIDS [Concomitant]
     Dosage: UNKNOWN
     Dates: start: 20050901
  9. CORTICOSTEROIDS [Concomitant]
     Dosage: 1 MG/KG

REACTIONS (11)
  - CROHN'S DISEASE [None]
  - DEMYELINATION [None]
  - DIPLOPIA [None]
  - DRUG EFFECT DECREASED [None]
  - FOLATE DEFICIENCY [None]
  - HEADACHE [None]
  - HOMOCYSTINAEMIA [None]
  - MULTIPLE SCLEROSIS [None]
  - SAPHO SYNDROME [None]
  - SOMNOLENCE [None]
  - VASCULITIS CEREBRAL [None]
